FAERS Safety Report 5085286-5 (Version None)
Quarter: 2006Q3

REPORT INFORMATION
  Report Type: 
  Country: None (occurrence: None)
  Receive Date: 20060817
  Receipt Date: 20060804
  Transmission Date: 20061208
  Serious: Yes (Death, Hospitalization)
  Sender: FDA-Public Use
  Company Number: 2004047305

PATIENT
  Age: 45 Year
  Sex: Female
  Weight: 105 kg

DRUGS (15)
  1. SILDENAFIL CITRATE [Suspect]
     Indication: PULMONARY HYPERTENSION
     Dosage: 120 MG (40 MG, 3 IN 1 D); ORAL
     Route: 048
     Dates: start: 20030901, end: 20040713
  2. NORVASC [Concomitant]
  3. POTASSIUM [Concomitant]
  4. PREDNISONE TAB [Concomitant]
  5. PREVACID [Concomitant]
  6. LASIX [Concomitant]
  7. COMBIVENT [Concomitant]
  8. ALBUTEROL [Concomitant]
  9. FLOLAN [Concomitant]
  10. LOMOTIL [Concomitant]
  11. LEVAQUIN [Concomitant]
  12. HEPARIN [Concomitant]
  13. WARFARIN SODIUM [Concomitant]
  14. INSULIN [Concomitant]
  15. METFORMIN HCL [Concomitant]

REACTIONS (10)
  - BRADYCARDIA [None]
  - CARDIAC FAILURE HIGH OUTPUT [None]
  - EPISTAXIS [None]
  - HAEMODYNAMIC INSTABILITY [None]
  - HAEMOPTYSIS [None]
  - HEPARIN-INDUCED THROMBOCYTOPENIA [None]
  - HYPOXIA [None]
  - PULMONARY HAEMORRHAGE [None]
  - RESUSCITATION [None]
  - RIGHT VENTRICULAR FAILURE [None]
